FAERS Safety Report 21404321 (Version 10)
Quarter: 2024Q3

REPORT INFORMATION
  Report Type: Spontaneous
  Country: US (occurrence: US)
  Receive Date: 20221003
  Receipt Date: 20240729
  Transmission Date: 20241016
  Serious: Yes (Death, Hospitalization, Other)
  Sender: SANOFI AVENTIS
  Company Number: US-SA-SAC20220930001348

PATIENT
  Age: 74 Year
  Sex: Male

DRUGS (7)
  1. DUPIXENT [Suspect]
     Active Substance: DUPILUMAB
     Indication: Neurodermatitis
     Dosage: 600 MG, 1X
     Route: 058
     Dates: start: 202209, end: 202209
  2. DUPIXENT [Suspect]
     Active Substance: DUPILUMAB
     Dosage: 300 MG, QOW
     Route: 058
     Dates: start: 2022
  3. DUPIXENT [Suspect]
     Active Substance: DUPILUMAB
     Dosage: 600 MG, 1X
     Route: 058
     Dates: start: 202311, end: 202311
  4. DUPIXENT [Suspect]
     Active Substance: DUPILUMAB
     Dosage: 300 MG, QOW
     Route: 058
     Dates: start: 2023
  5. METOPROLOL TARTRATE [Concomitant]
     Active Substance: METOPROLOL TARTRATE
     Dosage: UNK
  6. ENTRESTO [Concomitant]
     Active Substance: SACUBITRIL\VALSARTAN
     Dosage: UNK
  7. VERQUVO [Concomitant]
     Active Substance: VERICIGUAT
     Dosage: UNK

REACTIONS (11)
  - Death [Fatal]
  - Pulmonary oedema [Unknown]
  - Urinary tract infection [Unknown]
  - Dehydration [Unknown]
  - Pneumonia [Unknown]
  - Epistaxis [Unknown]
  - Pain [Unknown]
  - Cardiac disorder [Unknown]
  - Renal impairment [Unknown]
  - Weight decreased [Unknown]
  - Oral herpes [Unknown]

NARRATIVE: CASE EVENT DATE: 20221030
